FAERS Safety Report 4718207-2 (Version None)
Quarter: 2005Q3

REPORT INFORMATION
  Report Type: 
  Country: None (occurrence: None)
  Receive Date: 20050719
  Receipt Date: 20050127
  Transmission Date: 20060218
  Serious: Yes (Hospitalization)
  Sender: FDA-Public Use
  Company Number: A-US2002-00385

PATIENT
  Age: 60 Year
  Sex: Female
  Weight: 44.4 kg

DRUGS (7)
  1. TRACLEER [Suspect]
     Indication: PULMONARY HYPERTENSION
     Dosage: 125 MG, BID; ORAL
     Route: 048
     Dates: start: 20020128
  2. FLOLAN [Concomitant]
  3. COUMADIN [Concomitant]
  4. ZOLOFT [Concomitant]
  5. ALDACTONE [Concomitant]
  6. DIGOXIN [Concomitant]
  7. ZAROXOLYN [Concomitant]

REACTIONS (4)
  - HAEMATOCRIT DECREASED [None]
  - OEDEMA [None]
  - OEDEMA PERIPHERAL [None]
  - RIGHT VENTRICULAR FAILURE [None]
